FAERS Safety Report 23290859 (Version 1)
Quarter: 2023Q4

REPORT INFORMATION
  Report Type: Spontaneous
  Country: US (occurrence: US)
  Receive Date: 20231213
  Receipt Date: 20231213
  Transmission Date: 20240110
  Serious: No
  Sender: FDA-Public Use
  Company Number: US-ALVOGEN-2023090931

PATIENT
  Age: 74 Year
  Sex: Male

DRUGS (2)
  1. FENTANYL [Suspect]
     Active Substance: FENTANYL\FENTANYL CITRATE
     Indication: Pain
     Dosage: EXPIRATION DATE: UU-MAY-2025?MANUFACTURING DATE: 24-MAY-2022
     Dates: start: 20230306
  2. HYDROCODONE [Concomitant]
     Active Substance: HYDROCODONE
     Indication: Pain
     Dosage: IN EVERY 24 HOURS.

REACTIONS (1)
  - Drug ineffective [Unknown]
